FAERS Safety Report 4342538-1 (Version None)
Quarter: 2004Q1

REPORT INFORMATION
  Report Type: 
  Country: None (occurrence: None)
  Receive Date: 20040213
  Receipt Date: 20031230
  Transmission Date: 20041129
  Serious: Yes (Other)
  Sender: FDA-Public Use
  Company Number: 355079

PATIENT
  Age: 53 Year
  Sex: Female

DRUGS (2)
  1. PEGASYS (PEG-INTERFERON ALFA-2A) 180 MCG/ML [Suspect]
     Dosage: ORAL
     Route: 048
  2. COPEGUS [Suspect]
     Dosage: ORAL
     Route: 048

REACTIONS (3)
  - FATIGUE [None]
  - INSOMNIA [None]
  - WHITE BLOOD CELL COUNT ABNORMAL [None]
